FAERS Safety Report 5327765-9 (Version None)
Quarter: 2007Q1

REPORT INFORMATION
  Report Type: 
  Country: None (occurrence: None)
  Receive Date: 20070226
  Receipt Date: 20060113
  Transmission Date: 20070707
  Serious: Yes (Other)
  Sender: FDA-Public Use
  Company Number: DSA_27681_2006

PATIENT
  Age: 58 Year
  Sex: Female
  Weight: 113.3993 kg

DRUGS (4)
  1. VASOTEC [Suspect]
     Dosage: DF PO
     Route: 048
     Dates: start: 20010301, end: 20010331
  2. MONOPRIL [Suspect]
     Dosage: 40 MG BID PO
     Route: 048
     Dates: end: 20010331
  3. SODIUM [Concomitant]
  4. NARCOTICS [Concomitant]

REACTIONS (1)
  - RENAL FAILURE [None]
